FAERS Safety Report 6102774-0 (Version None)
Quarter: 2009Q1

REPORT INFORMATION
  Report Type: 
  Country: None (occurrence: None)
  Receive Date: 20090304
  Receipt Date: 20090226
  Transmission Date: 20090719
  Serious: Yes (Hospitalization, Other)
  Sender: FDA-Public Use
  Company Number: GB-ROXANE LABORATORIES, INC.-2009-RO-00195RO

PATIENT
  Age: 43 Year
  Sex: Male

DRUGS (10)
  1. RAMIPRIL [Suspect]
  2. FLUCONAZOLE [Suspect]
     Indication: ORAL CANDIDIASIS
  3. CLOPIDROGEL [Suspect]
  4. GLICLAZIDE [Suspect]
  5. METFORMIN HCL [Suspect]
  6. ATENOLOL [Suspect]
  7. SIMVASTATIN [Suspect]
  8. CO-TRIMOXAZOLE [Suspect]
     Indication: PROPHYLAXIS
  9. TRUVADA [Concomitant]
     Indication: TUBERCULOSIS
  10. EFAVIRENZ [Concomitant]
     Indication: TUBERCULOSIS

REACTIONS (8)
  - DRUG INTERACTION [None]
  - GENITAL HERPES [None]
  - HEPATITIS B ANTIGEN POSITIVE [None]
  - HIV TEST POSITIVE [None]
  - ORAL CANDIDIASIS [None]
  - RENAL FAILURE ACUTE [None]
  - RHABDOMYOLYSIS [None]
  - TUBERCULOSIS [None]
